FAERS Safety Report 8472465-X (Version None)
Quarter: 2012Q2

REPORT INFORMATION
  Report Type: 
  Country: None (occurrence: None)
  Receive Date: 20120627
  Receipt Date: 20111018
  Transmission Date: 20120825
  Serious: Yes (Life-Threatening, Other)
  Sender: FDA-Public Use
  Company Number: US-AMGEN-USASP2011051727

PATIENT
  Age: 74 Year
  Sex: Female
  Weight: 82.086 kg

DRUGS (1)
  1. PROCRIT [Suspect]
     Indication: MYELODYSPLASTIC SYNDROME
     Dosage: UNK UNK, Q2WK
     Route: 058

REACTIONS (1)
  - TRANSIENT ISCHAEMIC ATTACK [None]
